FAERS Safety Report 14024948 (Version 3)
Quarter: 2017Q4

REPORT INFORMATION
  Report Type: Spontaneous
  Country: GB (occurrence: GB)
  Receive Date: 20170929
  Receipt Date: 20171016
  Transmission Date: 20180321
  Serious: Yes (Hospitalization)
  Sender: FDA-Public Use
  Company Number: GB-009507513-1709GBR013710

PATIENT
  Age: 78 Year
  Sex: Male

DRUGS (19)
  1. REVLIMID [Suspect]
     Active Substance: LENALIDOMIDE
     Indication: PLASMA CELL MYELOMA
     Dosage: DOSE REDUCED (5 MG)
     Route: 048
     Dates: start: 20170118, end: 20170323
  2. ASPIRIN. [Concomitant]
     Active Substance: ASPIRIN
     Indication: THROMBOSIS PROPHYLAXIS
     Dosage: 75 MG, 1 IN 1 D
     Route: 048
     Dates: start: 20161116
  3. ZOLEDRONIC ACID [Concomitant]
     Active Substance: ZOLEDRONIC ACID
     Indication: PROPHYLAXIS
     Dosage: 4 MG, 1 IN 1M
     Route: 041
     Dates: start: 20170118
  4. DEXAMETHASONE. [Suspect]
     Active Substance: DEXAMETHASONE
     Dosage: REDUCED DOSE. (10 MG)
     Route: 048
     Dates: end: 20170821
  5. REVLIMID [Suspect]
     Active Substance: LENALIDOMIDE
     Dosage: ON DAYS 1-21. (25 MG)
     Route: 048
     Dates: start: 20161116
  6. AMOXICILLIN (+) CLAVULANATE POTASSIUM [Concomitant]
     Active Substance: AMOXICILLIN\CLAVULANATE POTASSIUM
     Indication: ANTIPYRESIS
     Dosage: UNK
     Route: 048
     Dates: start: 20161119
  7. OMEPRAZOLE. [Concomitant]
     Active Substance: OMEPRAZOLE
     Indication: BARRETT^S OESOPHAGUS
     Dosage: 40 MG (20 MG, 2 IN 1D)
     Route: 048
  8. DEXAMETHASONE SODIUM PHOSPHATE. [Suspect]
     Active Substance: DEXAMETHASONE SODIUM PHOSPHATE
     Indication: PLASMA CELL MYELOMA
     Dosage: ON DAY 1. (20 MG)
     Route: 041
     Dates: start: 20161116
  9. REVLIMID [Suspect]
     Active Substance: LENALIDOMIDE
     Dosage: DOSE REDUCED (5 MG)
     Route: 048
     Dates: end: 20170821
  10. DOXYCYCLINE. [Concomitant]
     Active Substance: DOXYCYCLINE
     Indication: ANTIPYRESIS
     Dosage: UNK
     Route: 048
     Dates: start: 20161119
  11. FUROSEMIDE. [Concomitant]
     Active Substance: FUROSEMIDE
     Indication: HYPERTENSION
     Dosage: 20 MG, 1 IN 1 D
     Route: 048
  12. DEXAMETHASONE. [Suspect]
     Active Substance: DEXAMETHASONE
     Indication: PLASMA CELL MYELOMA
     Dosage: ON DAYS 1, 2, 4, 5, 8, 9, 11 AND 12. (20 MG)
     Route: 048
     Dates: start: 20161116
  13. CLEXANE (ENOXAPARIN SODIUM) [Concomitant]
     Active Substance: ENOXAPARIN SODIUM
     Indication: PULMONARY EMBOLISM
     Dosage: 100 MG, 1 IN 1 D
     Route: 065
  14. LOPERAMIDE [Concomitant]
     Active Substance: LOPERAMIDE
     Indication: DIARRHOEA
     Dosage: UNK
     Route: 048
     Dates: start: 20161124
  15. MAXOLON [Concomitant]
     Active Substance: METOCLOPRAMIDE HYDROCHLORIDE
     Indication: PROPHYLAXIS OF NAUSEA AND VOMITING
     Dosage: UNK
     Route: 048
     Dates: start: 20161116
  16. SEPTRIN [Concomitant]
     Active Substance: SULFAMETHOXAZOLE\TRIMETHOPRIM
     Indication: PNEUMOCYSTIS JIROVECII PNEUMONIA
     Dosage: 960 MG, 1 IN 1 D
     Route: 048
     Dates: start: 20161116
  17. CYANOCOBALAMIN. [Concomitant]
     Active Substance: CYANOCOBALAMIN
     Indication: PERNICIOUS ANAEMIA
     Dosage: UNK, 1 IN 1 D
     Route: 048
  18. DARATUMUMAB [Concomitant]
     Active Substance: DARATUMUMAB
     Indication: PLASMA CELL MYELOMA
     Dosage: 1070 MG, 1 IN 1 M
     Route: 041
     Dates: start: 20161116, end: 20170721
  19. RAMIPRIL. [Concomitant]
     Active Substance: RAMIPRIL
     Indication: HYPERTENSION
     Dosage: 5 MG, 1 IN 1 D
     Route: 048

REACTIONS (2)
  - Plasmacytoma [Recovered/Resolved]
  - Superior vena cava occlusion [Recovered/Resolved]

NARRATIVE: CASE EVENT DATE: 20170827
